FAERS Safety Report 4984354-3 (Version None)
Quarter: 2006Q2

REPORT INFORMATION
  Report Type: 
  Country: None (occurrence: None)
  Receive Date: 20060420
  Receipt Date: 20060412
  Transmission Date: 20061013
  Serious: Yes (Disabling)
  Sender: FDA-Public Use
  Company Number: 2006050394

PATIENT
  Sex: Female
  Weight: 128 kg

DRUGS (4)
  1. LYRICA [Suspect]
     Indication: RADICULITIS BRACHIAL
     Dosage: 150 MG (75 MG, 2 IN 1 D), ORAL
     Route: 048
     Dates: start: 20060320, end: 20060321
  2. CO-CODAMOL (CODEINE PHOSPHATE, PARACETAMOL) [Concomitant]
  3. FYBOGEL (ISPAGHULA) [Concomitant]
  4. LACTULOSE [Concomitant]

REACTIONS (4)
  - ABASIA [None]
  - MUSCULAR WEAKNESS [None]
  - SLEEP DISORDER [None]
  - SOMNOLENCE [None]
